FAERS Safety Report 12743420 (Version 2)
Quarter: 2016Q4

REPORT INFORMATION
  Report Type: Spontaneous
  Country: US (occurrence: US)
  Receive Date: 20160914
  Receipt Date: 20161018
  Transmission Date: 20170207
  Serious: No
  Sender: FDA-Public Use
  Company Number: US-BAYER-2016-175735

PATIENT
  Age: 70 Year
  Sex: Female

DRUGS (1)
  1. CLIMARA [Suspect]
     Active Substance: ESTRADIOL
     Dosage: UNK
     Route: 062
     Dates: start: 201607, end: 20160904

REACTIONS (3)
  - Product adhesion issue [None]
  - Application site reaction [Not Recovered/Not Resolved]
  - Device use issue [Not Recovered/Not Resolved]
